FAERS Safety Report 8913614 (Version 2)
Quarter: 2012Q4

REPORT INFORMATION
  Report Type: 
  Country: SE (occurrence: SE)
  Receive Date: 20121119
  Receipt Date: 20121211
  Transmission Date: 20130627
  Serious: Yes (Hospitalization, Other)
  Sender: FDA-Public Use
  Company Number: SE-JNJFOC-20121017660

PATIENT
  Age: 82 Year
  Sex: Male

DRUGS (7)
  1. XARELTO [Suspect]
     Indication: THROMBOSIS PROPHYLAXIS
     Route: 048
     Dates: start: 20120514, end: 20120516
  2. XARELTO [Suspect]
     Indication: THROMBOSIS PROPHYLAXIS
     Route: 048
     Dates: start: 201205
  3. XARELTO [Suspect]
     Indication: KNEE ARTHROPLASTY
     Route: 048
     Dates: start: 201205
  4. XARELTO [Suspect]
     Indication: KNEE ARTHROPLASTY
     Route: 048
     Dates: start: 20120514, end: 20120516
  5. NAPROXEN SODIUM [Interacting]
     Indication: PROCEDURAL PAIN
     Route: 048
     Dates: start: 20120514, end: 20120516
  6. AMLODIPINE [Concomitant]
     Route: 065
  7. NSAIDS [Concomitant]
     Route: 065

REACTIONS (3)
  - Gastric ulcer [Recovered/Resolved]
  - Gastrointestinal haemorrhage [Recovered/Resolved]
  - Drug interaction [Unknown]
